FAERS Safety Report 7629057-1 (Version None)
Quarter: 2011Q3

REPORT INFORMATION
  Report Type: 
  Country: None (occurrence: None)
  Receive Date: 20110701
  Receipt Date: 20110317
  Transmission Date: 20111222
  Serious: Yes (Hospitalization, Other)
  Sender: FDA-Public Use
  Company Number: 7023973

PATIENT
  Age: 45 Year
  Sex: Female
  Weight: 69 kg

DRUGS (5)
  1. CYMBALTA [Concomitant]
  2. OBETROL [Concomitant]
  3. REBIF [Suspect]
     Indication: MULTIPLE SCLEROSIS
     Dosage: 44 MCG, 3 IN 1 WK, SUBCUTANEOUS ; 44 MCG, 3 IN 1 WK, SUBCUTANEOUS
     Route: 058
     Dates: start: 20060101
  4. REBIF [Suspect]
     Indication: MULTIPLE SCLEROSIS
     Dosage: 44 MCG, 3 IN 1 WK, SUBCUTANEOUS ; 44 MCG, 3 IN 1 WK, SUBCUTANEOUS
     Route: 058
     Dates: start: 20020101, end: 20050501
  5. ZOLOFT [Concomitant]

REACTIONS (18)
  - FIBROMYALGIA [None]
  - INJECTION SITE ULCER [None]
  - SLEEP DISORDER [None]
  - LOCALISED INFECTION [None]
  - INJECTION SITE MASS [None]
  - INJECTION SITE SCAB [None]
  - RHEUMATOID ARTHRITIS [None]
  - FEELING ABNORMAL [None]
  - UTERINE POLYP [None]
  - EATING DISORDER [None]
  - BACK PAIN [None]
  - BREAST CANCER [None]
  - INTERVERTEBRAL DISC DEGENERATION [None]
  - MULTIPLE SCLEROSIS RELAPSE [None]
  - SCAR [None]
  - INJECTION SITE DISCHARGE [None]
  - INJECTION SITE PAIN [None]
  - INJECTION SITE DISCOLOURATION [None]
